FAERS Safety Report 13573876 (Version 3)
Quarter: 2017Q2

REPORT INFORMATION
  Report Type: Spontaneous
  Country: US (occurrence: US)
  Receive Date: 20170523
  Receipt Date: 20170621
  Transmission Date: 20170830
  Serious: Yes (Other)
  Sender: FDA-Public Use
  Company Number: US-PFIZER INC-2017224562

PATIENT
  Age: 22 Year
  Sex: Female

DRUGS (21)
  1. DILANTIN [Suspect]
     Active Substance: PHENYTOIN
     Dosage: 230 MG, (100 MG ORALLY IN THE MORNING AND 130 MG NIGHT)
     Route: 048
     Dates: start: 20110722
  2. DILANTIN [Suspect]
     Active Substance: PHENYTOIN
     Dosage: 230 MG, (100 MG ORALLY IN THE MORNING AND 130 MG NIGHT)
     Route: 048
     Dates: start: 20111003
  3. DILANTIN [Suspect]
     Active Substance: PHENYTOIN
     Dosage: 230 MG, (100 MG MORNING AND 130 MG AT NIGHT)
     Route: 048
     Dates: start: 20080519
  4. DILANTIN [Suspect]
     Active Substance: PHENYTOIN
     Dosage: 30 MG, 2X/DAY (TWICE DAILY)
     Route: 048
     Dates: start: 20090601
  5. VERAPAMIL [Concomitant]
     Active Substance: VERAPAMIL HYDROCHLORIDE
     Dosage: 40 MG, 2X/DAY (TWICE A DAY)
  6. DILANTIN [Suspect]
     Active Substance: PHENYTOIN
     Dosage: 230 MG, (100 MG ORALLY IN THE MORNING AND 130 MG NIGHT)
     Route: 048
     Dates: start: 20100325
  7. DILANTIN [Suspect]
     Active Substance: PHENYTOIN
     Indication: SEIZURE
     Dosage: 160 MG, DAILY (30 MG TABLETS TWO EACH MORNING AND A 100 MG ONE EACH EVENING FOR A TOTAL OF 160 MG)
     Route: 048
     Dates: start: 20081201
  8. DILANTIN [Suspect]
     Active Substance: PHENYTOIN
     Indication: SEIZURE
     Dosage: 100 MG, DAILY (PER DAY)
     Route: 048
     Dates: start: 20010917
  9. DILANTIN [Suspect]
     Active Substance: PHENYTOIN
     Dosage: 100 MG, 2X/DAY ( TWICE DAILY)
     Route: 048
     Dates: start: 20071017
  10. DILANTIN [Suspect]
     Active Substance: PHENYTOIN
     Dosage: 30 MG, 2X/DAY (TWICE DAILY)
     Route: 048
     Dates: start: 20110321
  11. DILANTIN [Suspect]
     Active Substance: PHENYTOIN
     Dosage: 100 MG, UNK
     Route: 048
     Dates: start: 20121015
  12. CLONAZEPAM. [Concomitant]
     Active Substance: CLONAZEPAM
     Dosage: 1 MG, 2X/DAY (TWICE A DAY)
     Route: 048
  13. VITAMIN D [Concomitant]
     Active Substance: CHOLECALCIFEROL
     Dosage: 1000 IU, 2X/DAY (TWICE A DAY)
  14. DILANTIN [Suspect]
     Active Substance: PHENYTOIN
     Dosage: 190 MG, DAILY (PER DAY)
     Route: 048
     Dates: start: 20090717
  15. DILANTIN [Suspect]
     Active Substance: PHENYTOIN
     Dosage: 230 MG, (100 MG ORALLY IN THE MORNING AND 130 MG NIGHT)
     Route: 048
     Dates: start: 20100629
  16. BANZEL [Concomitant]
     Active Substance: RUFINAMIDE
     Dosage: 1200 MG, (400 MG IN THE MORNING AND 800 MG AT NIGHT)
     Route: 048
  17. DILANTIN [Suspect]
     Active Substance: PHENYTOIN
     Dosage: 30 MG, ALTERNATE DAY (EVERY ALTERNATE NIGHT)
     Route: 048
     Dates: start: 20120426
  18. DILANTIN [Suspect]
     Active Substance: PHENYTOIN
     Dosage: 230 MG, (100 MG MORNING AND 130 MG AT NIGHT)
     Route: 048
     Dates: start: 20080122
  19. DILANTIN [Suspect]
     Active Substance: PHENYTOIN
     Dosage: 230 MG, (100 MG ORALLY IN THE MORNING AND 130 MG NIGHT)
     Route: 048
     Dates: start: 20091221
  20. DILANTIN [Suspect]
     Active Substance: PHENYTOIN
     Dosage: 230 MG, (100 MG ORALLY IN THE MORNING AND 130 MG NIGHT)
     Route: 048
     Dates: start: 20101018
  21. TOPAMAX [Concomitant]
     Active Substance: TOPIRAMATE
     Dosage: 300 MG, (100 MG IN THE MORNING AND 200 MG AT NIGHT)
     Route: 048

REACTIONS (1)
  - Cerebellar atrophy [Unknown]

NARRATIVE: CASE EVENT DATE: 20160302
